FAERS Safety Report 9317992 (Version 1)
Quarter: 2013Q2

REPORT INFORMATION
  Report Type: Spontaneous
  Country: US (occurrence: US)
  Receive Date: 20130530
  Receipt Date: 20130530
  Transmission Date: 20140414
  Serious: No
  Sender: FDA-Public Use
  Company Number: US-GLAXOSMITHKLINE-A0999452A

PATIENT
  Sex: Male
  Weight: 46.4 kg

DRUGS (4)
  1. VENTOLIN [Suspect]
     Indication: CHRONIC OBSTRUCTIVE PULMONARY DISEASE
     Dosage: 4PUFF VARIABLE DOSE
     Route: 055
     Dates: start: 2010
  2. ADVAIR [Suspect]
     Indication: PROPHYLAXIS
     Route: 055
  3. ALBUTEROL SULFATE [Suspect]
     Indication: PRODUCT USED FOR UNKNOWN INDICATION
     Route: 065
  4. PRO-AIR [Concomitant]

REACTIONS (7)
  - Dyspnoea [Not Recovered/Not Resolved]
  - Urine output decreased [Not Recovered/Not Resolved]
  - Ill-defined disorder [Not Recovered/Not Resolved]
  - Lung disorder [Unknown]
  - Pulmonary function test decreased [Unknown]
  - Dysuria [Unknown]
  - Product quality issue [Unknown]
